FAERS Safety Report 24036876 (Version 1)
Quarter: 2024Q3

REPORT INFORMATION
  Report Type: Report from Study
  Country: HU (occurrence: HU)
  Receive Date: 20240701
  Receipt Date: 20240701
  Transmission Date: 20241017
  Serious: Yes (Other)
  Sender: NOVARTIS
  Company Number: HU-002147023-NVSC2023HU084642

PATIENT
  Age: 70 Year
  Sex: Female

DRUGS (2)
  1. KISQALI [Suspect]
     Active Substance: RIBOCICLIB
     Indication: Breast cancer female
     Dosage: UNK
     Route: 065
  2. KISQALI [Suspect]
     Active Substance: RIBOCICLIB
     Dosage: 600 MG (DAILY 1X3 TABLETS)
     Route: 048
     Dates: start: 20230113, end: 20230411

REACTIONS (14)
  - Leukopenia [Recovered/Resolved]
  - Deafness unilateral [Recovering/Resolving]
  - Red cell distribution width increased [Recovered/Resolved]
  - Basophil percentage increased [Recovered/Resolved]
  - Neutrophil count decreased [Recovered/Resolved]
  - White blood cell count decreased [Recovered/Resolved]
  - Red blood cell count decreased [Recovered/Resolved]
  - Haemoglobin decreased [Recovered/Resolved]
  - Platelet count decreased [Recovered/Resolved]
  - Lymphocyte percentage increased [Recovered/Resolved]
  - Eye pruritus [Recovered/Resolved]
  - Heart rate increased [Unknown]
  - Hypertension [Unknown]
  - Neutrophil percentage increased [Recovered/Resolved]

NARRATIVE: CASE EVENT DATE: 20230406
